FAERS Safety Report 19144859 (Version 11)
Quarter: 2023Q1

REPORT INFORMATION
  Report Type: Report from Study
  Country: CA (occurrence: CA)
  Receive Date: 20210416
  Receipt Date: 20230301
  Transmission Date: 20230418
  Serious: Yes (Other)
  Sender: FDA-Public Use
  Company Number: CA-SA-SAC20210414001464

PATIENT
  Age: 43 Year
  Sex: Female

DRUGS (350)
  1. ATOMOXETINE HYDROCHLORIDE [Suspect]
     Active Substance: ATOMOXETINE HYDROCHLORIDE
     Indication: Migraine
     Dosage: 1 DF, QD
     Route: 005
  2. ATOMOXETINE HYDROCHLORIDE [Suspect]
     Active Substance: ATOMOXETINE HYDROCHLORIDE
     Dosage: 1 DF, QD
     Route: 065
  3. ATOMOXETINE HYDROCHLORIDE [Suspect]
     Active Substance: ATOMOXETINE HYDROCHLORIDE
     Dosage: 1 DF, QD
     Route: 065
  4. ATOMOXETINE HYDROCHLORIDE [Suspect]
     Active Substance: ATOMOXETINE HYDROCHLORIDE
     Dosage: 1 DF, QD
     Route: 065
  5. ATOMOXETINE HYDROCHLORIDE [Suspect]
     Active Substance: ATOMOXETINE HYDROCHLORIDE
     Dosage: 1 DF
  6. ATOMOXETINE HYDROCHLORIDE [Suspect]
     Active Substance: ATOMOXETINE HYDROCHLORIDE
     Dosage: 1 DF, QOD
  7. TOPICORT [Suspect]
     Active Substance: DESOXIMETASONE
     Indication: Product used for unknown indication
     Dosage: 1 DF, Q12H
  8. TOPICORT [Suspect]
     Active Substance: DESOXIMETASONE
     Dosage: 25 MG, QD
  9. TOPICORT [Suspect]
     Active Substance: DESOXIMETASONE
     Dosage: 1 DF, Q12H
  10. TOPICORT [Suspect]
     Active Substance: DESOXIMETASONE
     Dosage: 25 MG, Q12H
  11. TRETINOIN [Suspect]
     Active Substance: TRETINOIN
     Indication: Product used for unknown indication
     Dosage: 1 DF
  12. BETAMETHASONE VALERATE [Suspect]
     Active Substance: BETAMETHASONE VALERATE
     Indication: Product used for unknown indication
     Dosage: 1 DF, QD
  13. BETAMETHASONE VALERATE [Suspect]
     Active Substance: BETAMETHASONE VALERATE
     Dosage: UNK
  14. BETAMETHASONE VALERATE [Suspect]
     Active Substance: BETAMETHASONE VALERATE
     Dosage: 1 DF, QD
  15. BETAMETHASONE VALERATE [Suspect]
     Active Substance: BETAMETHASONE VALERATE
     Dosage: 1 DF, QOD
  16. BETAMETHASONE VALERATE [Suspect]
     Active Substance: BETAMETHASONE VALERATE
     Dosage: 1 DF
  17. BETAMETHASONE VALERATE [Suspect]
     Active Substance: BETAMETHASONE VALERATE
  18. BETAMETHASONE VALERATE [Suspect]
     Active Substance: BETAMETHASONE VALERATE
     Dosage: 1 DF, QD
  19. BETAMETHASONE VALERATE [Suspect]
     Active Substance: BETAMETHASONE VALERATE
     Dosage: 1 DF, QOD
  20. NAPROXEN [Suspect]
     Active Substance: NAPROXEN
     Indication: Product used for unknown indication
     Dosage: 2 DF, BID
  21. NAPROXEN [Suspect]
     Active Substance: NAPROXEN
     Dosage: 1 DF, Q12H
     Route: 065
  22. NAPROXEN [Suspect]
     Active Substance: NAPROXEN
     Dosage: 1 DF, BID
     Route: 065
  23. NAPROXEN [Suspect]
     Active Substance: NAPROXEN
     Dosage: 2 DF, Q12H
     Route: 065
  24. NAPROXEN [Suspect]
     Active Substance: NAPROXEN
     Dosage: 1 DF
     Route: 065
  25. NAPROXEN [Suspect]
     Active Substance: NAPROXEN
     Dosage: 1 DF, BID
  26. NAPROXEN [Suspect]
     Active Substance: NAPROXEN
     Dosage: 1 DF, QOD
  27. NAPROXEN [Suspect]
     Active Substance: NAPROXEN
     Dosage: 2 DF, BID
  28. NAPROXEN [Suspect]
     Active Substance: NAPROXEN
     Dosage: 2 DF, BID
  29. NAPROXEN [Suspect]
     Active Substance: NAPROXEN
     Dosage: 1 DF
  30. NAPROXEN [Suspect]
     Active Substance: NAPROXEN
     Dosage: 1 DF, BID
  31. NAPROXEN [Suspect]
     Active Substance: NAPROXEN
  32. NAPROXEN [Suspect]
     Active Substance: NAPROXEN
  33. NAPROXEN [Suspect]
     Active Substance: NAPROXEN
  34. NAPROXEN [Suspect]
     Active Substance: NAPROXEN
  35. NAPROXEN [Suspect]
     Active Substance: NAPROXEN
     Dosage: 1 DF, BID
  36. NAPROXEN [Suspect]
     Active Substance: NAPROXEN
     Dosage: 1 DF, QOD
  37. NAPROXEN [Suspect]
     Active Substance: NAPROXEN
     Dosage: 2 DF, BID
  38. NAPROXEN [Suspect]
     Active Substance: NAPROXEN
     Dosage: 2 DF, BID
  39. NAPROXEN [Suspect]
     Active Substance: NAPROXEN
     Dosage: 1 DF
  40. NAPROXEN [Suspect]
     Active Substance: NAPROXEN
     Dosage: 1 DF
  41. PANTOPRAZOLE SODIUM [Suspect]
     Active Substance: PANTOPRAZOLE SODIUM
     Indication: Product used for unknown indication
     Dosage: 1 DF, BID
  42. PANTOPRAZOLE SODIUM [Suspect]
     Active Substance: PANTOPRAZOLE SODIUM
     Dosage: 2 DF, QD
     Route: 065
  43. PANTOPRAZOLE SODIUM [Suspect]
     Active Substance: PANTOPRAZOLE SODIUM
     Dosage: 1 DF, BID
  44. PANTOPRAZOLE SODIUM [Suspect]
     Active Substance: PANTOPRAZOLE SODIUM
     Dosage: 1 DF, QOD
  45. PANTOPRAZOLE SODIUM [Suspect]
     Active Substance: PANTOPRAZOLE SODIUM
     Dosage: 2 DF, QD
  46. PANTOPRAZOLE SODIUM [Suspect]
     Active Substance: PANTOPRAZOLE SODIUM
     Dosage: PROLONGED-RELEASE TABLET
  47. PANTOPRAZOLE SODIUM [Suspect]
     Active Substance: PANTOPRAZOLE SODIUM
     Dosage: 1 DF, BID
  48. PANTOPRAZOLE SODIUM [Suspect]
     Active Substance: PANTOPRAZOLE SODIUM
  49. PANTOPRAZOLE SODIUM [Suspect]
     Active Substance: PANTOPRAZOLE SODIUM
  50. PANTOPRAZOLE SODIUM [Suspect]
     Active Substance: PANTOPRAZOLE SODIUM
     Dosage: PROLONGED-RELEASE TABLET
  51. PANTOPRAZOLE SODIUM [Suspect]
     Active Substance: PANTOPRAZOLE SODIUM
     Dosage: 1 DF, BID
  52. PANTOPRAZOLE SODIUM [Suspect]
     Active Substance: PANTOPRAZOLE SODIUM
     Dosage: 1 DF, QOD
  53. PANTOPRAZOLE SODIUM [Suspect]
     Active Substance: PANTOPRAZOLE SODIUM
     Dosage: 2 DF, QD
  54. PANTOPRAZOLE SODIUM [Suspect]
     Active Substance: PANTOPRAZOLE SODIUM
     Dosage: PROLONGED-RELEASE TABLET
  55. PANTOPRAZOLE SODIUM [Suspect]
     Active Substance: PANTOPRAZOLE SODIUM
     Dosage: 1 DF, BID
  56. PANTOPRAZOLE SODIUM [Suspect]
     Active Substance: PANTOPRAZOLE SODIUM
     Dosage: 1 DF, BID
  57. PANTOPRAZOLE SODIUM [Suspect]
     Active Substance: PANTOPRAZOLE SODIUM
  58. PANTOPRAZOLE SODIUM [Suspect]
     Active Substance: PANTOPRAZOLE SODIUM
  59. PANTOPRAZOLE SODIUM [Suspect]
     Active Substance: PANTOPRAZOLE SODIUM
     Dosage: PROLONGED-RELEASE TABLET
  60. PANTOPRAZOLE SODIUM [Suspect]
     Active Substance: PANTOPRAZOLE SODIUM
  61. PANTOPRAZOLE SODIUM [Suspect]
     Active Substance: PANTOPRAZOLE SODIUM
     Dosage: 3 DF
  62. HYDROMORPHONE [Suspect]
     Active Substance: HYDROMORPHONE
     Indication: Product used for unknown indication
     Dosage: 1 DF, QOD
  63. HYDROMORPHONE [Suspect]
     Active Substance: HYDROMORPHONE
     Dosage: 1 DF, Q6H
     Route: 065
  64. HYDROMORPHONE [Suspect]
     Active Substance: HYDROMORPHONE
     Dosage: 2 DF, Q12H
     Route: 065
  65. HYDROMORPHONE [Suspect]
     Active Substance: HYDROMORPHONE
     Dosage: 1 DF
     Route: 065
  66. HYDROMORPHONE [Suspect]
     Active Substance: HYDROMORPHONE
     Dosage: 1 DF
     Route: 065
  67. HYDROMORPHONE [Suspect]
     Active Substance: HYDROMORPHONE
     Dosage: QOD
  68. HYDROMORPHONE [Suspect]
     Active Substance: HYDROMORPHONE
  69. HYDROMORPHONE [Suspect]
     Active Substance: HYDROMORPHONE
  70. HYDROMORPHONE [Suspect]
     Active Substance: HYDROMORPHONE
  71. HYDROMORPHONE [Suspect]
     Active Substance: HYDROMORPHONE
     Dosage: QOD
  72. HYDROMORPHONE [Suspect]
     Active Substance: HYDROMORPHONE
  73. HYDROMORPHONE [Suspect]
     Active Substance: HYDROMORPHONE
  74. HYDROMORPHONE [Suspect]
     Active Substance: HYDROMORPHONE
  75. HYDROMORPHONE [Suspect]
     Active Substance: HYDROMORPHONE
  76. HYDROMORPHONE [Suspect]
     Active Substance: HYDROMORPHONE
     Dosage: QOD
  77. HYDROMORPHONE [Suspect]
     Active Substance: HYDROMORPHONE
  78. HYDROMORPHONE [Suspect]
     Active Substance: HYDROMORPHONE
  79. HYDROMORPHONE [Suspect]
     Active Substance: HYDROMORPHONE
  80. HYDROMORPHONE [Suspect]
     Active Substance: HYDROMORPHONE
  81. CETIRIZINE HYDROCHLORIDE [Suspect]
     Active Substance: CETIRIZINE HYDROCHLORIDE
     Indication: Product used for unknown indication
     Dosage: UNK
     Route: 065
  82. CETIRIZINE HYDROCHLORIDE [Suspect]
     Active Substance: CETIRIZINE HYDROCHLORIDE
     Dosage: 3 DF
     Route: 065
  83. CETIRIZINE HYDROCHLORIDE [Suspect]
     Active Substance: CETIRIZINE HYDROCHLORIDE
     Dosage: UNK
  84. CETIRIZINE HYDROCHLORIDE [Suspect]
     Active Substance: CETIRIZINE HYDROCHLORIDE
  85. CETIRIZINE HYDROCHLORIDE [Suspect]
     Active Substance: CETIRIZINE HYDROCHLORIDE
     Dosage: UNK
  86. CETIRIZINE HYDROCHLORIDE [Suspect]
     Active Substance: CETIRIZINE HYDROCHLORIDE
     Dosage: UNK
  87. CETIRIZINE HYDROCHLORIDE [Suspect]
     Active Substance: CETIRIZINE HYDROCHLORIDE
     Dosage: UNK
  88. CETIRIZINE HYDROCHLORIDE [Suspect]
     Active Substance: CETIRIZINE HYDROCHLORIDE
     Dosage: UNK
  89. CETIRIZINE HYDROCHLORIDE [Suspect]
     Active Substance: CETIRIZINE HYDROCHLORIDE
     Dosage: UNK
  90. CETIRIZINE HYDROCHLORIDE [Suspect]
     Active Substance: CETIRIZINE HYDROCHLORIDE
     Dosage: UNK
  91. CETIRIZINE HYDROCHLORIDE [Suspect]
     Active Substance: CETIRIZINE HYDROCHLORIDE
     Dosage: UNK
  92. CANDESARTAN CILEXETIL [Suspect]
     Active Substance: CANDESARTAN CILEXETIL
     Indication: Migraine
     Dosage: UNK
     Route: 048
  93. CANDESARTAN CILEXETIL [Suspect]
     Active Substance: CANDESARTAN CILEXETIL
     Dosage: UNK
     Route: 048
  94. CANDESARTAN CILEXETIL [Suspect]
     Active Substance: CANDESARTAN CILEXETIL
     Dosage: UNK
     Route: 048
  95. CANDESARTAN CILEXETIL [Suspect]
     Active Substance: CANDESARTAN CILEXETIL
     Dosage: UNK
     Route: 065
  96. CANDESARTAN CILEXETIL [Suspect]
     Active Substance: CANDESARTAN CILEXETIL
     Dosage: UNK
     Route: 048
  97. CANDESARTAN CILEXETIL [Suspect]
     Active Substance: CANDESARTAN CILEXETIL
     Dosage: UNK
     Route: 048
  98. CANDESARTAN CILEXETIL [Suspect]
     Active Substance: CANDESARTAN CILEXETIL
     Dosage: UNK
  99. CANDESARTAN CILEXETIL [Suspect]
     Active Substance: CANDESARTAN CILEXETIL
     Dosage: UNK
     Route: 048
  100. CANDESARTAN CILEXETIL [Suspect]
     Active Substance: CANDESARTAN CILEXETIL
     Dosage: UNK
     Route: 048
  101. CANDESARTAN CILEXETIL [Suspect]
     Active Substance: CANDESARTAN CILEXETIL
     Dosage: UNK
  102. DOMPERIDONE MALEATE [Suspect]
     Active Substance: DOMPERIDONE MALEATE
     Indication: Product used for unknown indication
     Dosage: 1 DF, Q8H
     Route: 065
  103. DOMPERIDONE MALEATE [Suspect]
     Active Substance: DOMPERIDONE MALEATE
     Dosage: 3 DF
  104. DOMPERIDONE MALEATE [Suspect]
     Active Substance: DOMPERIDONE MALEATE
     Dosage: 3 DF, QD
  105. DOMPERIDONE MALEATE [Suspect]
     Active Substance: DOMPERIDONE MALEATE
     Dosage: 3 DF, Q3D
  106. DOMPERIDONE MALEATE [Suspect]
     Active Substance: DOMPERIDONE MALEATE
     Dosage: 3 DF, QD
  107. DESOXIMETASONE [Suspect]
     Active Substance: DESOXIMETASONE
     Indication: Product used for unknown indication
     Dosage: 1 DF, Q12H
     Route: 065
  108. DESOXIMETASONE [Suspect]
     Active Substance: DESOXIMETASONE
     Dosage: 3 MG, QD
  109. DESOXIMETASONE [Suspect]
     Active Substance: DESOXIMETASONE
     Dosage: 25 MG, Q12H
  110. DESOXIMETASONE [Suspect]
     Active Substance: DESOXIMETASONE
     Dosage: 3 MG
  111. DESOXIMETASONE [Suspect]
     Active Substance: DESOXIMETASONE
     Dosage: 12 MG, Q12H
  112. DIETARY SUPPLEMENT [Suspect]
     Active Substance: DIETARY SUPPLEMENT
  113. PAROXETINE [Suspect]
     Active Substance: PAROXETINE
     Dosage: UNK
  114. TOPIRAMATE [Suspect]
     Active Substance: TOPIRAMATE
     Indication: Migraine
     Dosage: UNK
  115. TOPIRAMATE [Suspect]
     Active Substance: TOPIRAMATE
     Dosage: 25 MG, QD
  116. TOPIRAMATE [Suspect]
     Active Substance: TOPIRAMATE
     Dosage: 25 MG, QD
  117. TOPIRAMATE [Suspect]
     Active Substance: TOPIRAMATE
     Dosage: 25 MG, QD
  118. TOPIRAMATE [Suspect]
     Active Substance: TOPIRAMATE
     Dosage: UNK
  119. TOPIRAMATE [Suspect]
     Active Substance: TOPIRAMATE
     Dosage: 25 MG, QD
  120. CAFFEINE\VITAMINS [Suspect]
     Active Substance: CAFFEINE\VITAMINS
     Dosage: UNK
  121. DOMPERIDONE MALEATE [Suspect]
     Active Substance: DOMPERIDONE MALEATE
     Indication: Product used for unknown indication
     Dosage: UNK
  122. DOMPERIDONE MALEATE [Suspect]
     Active Substance: DOMPERIDONE MALEATE
     Dosage: UNK
  123. DOMPERIDONE MALEATE [Suspect]
     Active Substance: DOMPERIDONE MALEATE
     Dosage: UNK
  124. DOMPERIDONE MALEATE [Suspect]
     Active Substance: DOMPERIDONE MALEATE
     Dosage: UNK
  125. DOMPERIDONE MALEATE [Suspect]
     Active Substance: DOMPERIDONE MALEATE
     Dosage: UNK
  126. ATOMOXETINE HYDROCHLORIDE [Suspect]
     Active Substance: ATOMOXETINE HYDROCHLORIDE
     Indication: Migraine
     Dosage: UNK
  127. ATOMOXETINE HYDROCHLORIDE [Suspect]
     Active Substance: ATOMOXETINE HYDROCHLORIDE
  128. MINERALS\VITAMINS [Suspect]
     Active Substance: MINERALS\VITAMINS
     Indication: Product used for unknown indication
     Dosage: 1 DF, QD
  129. MINERALS\VITAMINS [Suspect]
     Active Substance: MINERALS\VITAMINS
     Dosage: 1 DF, QD
  130. MINERALS\VITAMINS [Suspect]
     Active Substance: MINERALS\VITAMINS
     Dosage: 1 DF, QD
  131. DOMPERIDONE [Suspect]
     Active Substance: DOMPERIDONE
     Indication: Product used for unknown indication
     Dosage: UNK
  132. DOMPERIDONE [Suspect]
     Active Substance: DOMPERIDONE
     Dosage: UNK
  133. DOMPERIDONE [Suspect]
     Active Substance: DOMPERIDONE
     Dosage: 1 DF, TID
  134. DOMPERIDONE [Suspect]
     Active Substance: DOMPERIDONE
     Dosage: 3 DF
  135. DOMPERIDONE [Suspect]
     Active Substance: DOMPERIDONE
     Dosage: 3 DF, QD
  136. DOMPERIDONE [Suspect]
     Active Substance: DOMPERIDONE
     Dosage: UNK
  137. DOMPERIDONE [Suspect]
     Active Substance: DOMPERIDONE
  138. DOMPERIDONE [Suspect]
     Active Substance: DOMPERIDONE
     Dosage: UNK
  139. DOMPERIDONE [Suspect]
     Active Substance: DOMPERIDONE
  140. FLUTICASONE FUROATE [Suspect]
     Active Substance: FLUTICASONE FUROATE
     Indication: Product used for unknown indication
     Dosage: 1 DF, SPRAY, METERED DOSE
  141. FLUTICASONE FUROATE [Suspect]
     Active Substance: FLUTICASONE FUROATE
     Dosage: 1 DF, QD, SPRAY, METERED DOSE
  142. FLUTICASONE FUROATE [Suspect]
     Active Substance: FLUTICASONE FUROATE
     Dosage: SPRAY, METERED DOSE
  143. CALCIUM [Suspect]
     Active Substance: CALCIUM
     Indication: Product used for unknown indication
     Dosage: UNK
  144. CALCIUM [Suspect]
     Active Substance: CALCIUM
     Dosage: 1 DF
  145. CALCIUM [Suspect]
     Active Substance: CALCIUM
     Dosage: UNK
  146. CALCIUM [Suspect]
     Active Substance: CALCIUM
     Dosage: UNK
  147. BOTULINUM TOXIN TYPE A [Suspect]
     Active Substance: BOTULINUM TOXIN TYPE A
     Indication: Product used for unknown indication
     Dosage: POWDER FOR SOLUTION
  148. BOTULINUM TOXIN TYPE A [Suspect]
     Active Substance: BOTULINUM TOXIN TYPE A
     Dosage: POWDER FOR SOLUTION
  149. BUTRANS [Suspect]
     Active Substance: BUPRENORPHINE
     Indication: Product used for unknown indication
     Dosage: DAILY DOSE: PATCH
  150. BUTRANS [Suspect]
     Active Substance: BUPRENORPHINE
     Dosage: PATCH
  151. BUTRANS [Suspect]
     Active Substance: BUPRENORPHINE
     Dosage: PATCH
  152. BUTRANS [Suspect]
     Active Substance: BUPRENORPHINE
     Dosage: PATCH
  153. CYCLOBENZAPRINE HYDROCHLORIDE [Suspect]
     Active Substance: CYCLOBENZAPRINE HYDROCHLORIDE
     Indication: Product used for unknown indication
     Dosage: 1 DF, QD
  154. CYCLOBENZAPRINE HYDROCHLORIDE [Suspect]
     Active Substance: CYCLOBENZAPRINE HYDROCHLORIDE
     Dosage: 1 DF, QD
  155. CYCLOBENZAPRINE HYDROCHLORIDE [Suspect]
     Active Substance: CYCLOBENZAPRINE HYDROCHLORIDE
     Dosage: 3 DF, QD
     Route: 065
  156. CYCLOBENZAPRINE HYDROCHLORIDE [Suspect]
     Active Substance: CYCLOBENZAPRINE HYDROCHLORIDE
     Dosage: 1 DF, QD
     Route: 065
  157. CYCLOBENZAPRINE HYDROCHLORIDE [Suspect]
     Active Substance: CYCLOBENZAPRINE HYDROCHLORIDE
     Dosage: 1 DF, QOD
  158. AIMOVIG [Suspect]
     Active Substance: ERENUMAB-AOOE
     Indication: Migraine
     Dosage: UNK
  159. AIMOVIG [Suspect]
     Active Substance: ERENUMAB-AOOE
     Route: 058
  160. AIMOVIG [Suspect]
     Active Substance: ERENUMAB-AOOE
     Dosage: UNK
  161. AIMOVIG [Suspect]
     Active Substance: ERENUMAB-AOOE
     Dosage: UNK
     Route: 058
  162. AIMOVIG [Suspect]
     Active Substance: ERENUMAB-AOOE
     Dosage: UNK
  163. AIMOVIG [Suspect]
     Active Substance: ERENUMAB-AOOE
     Dosage: UNK
     Route: 058
  164. AIMOVIG [Suspect]
     Active Substance: ERENUMAB-AOOE
     Dosage: UNK
  165. FLUTICASONE FUROATE [Suspect]
     Active Substance: FLUTICASONE FUROATE
     Indication: Product used for unknown indication
     Dosage: SPRAY, METERED DOSE (1 IN 1 D)
  166. FLUTICASONE FUROATE [Suspect]
     Active Substance: FLUTICASONE FUROATE
     Dosage: SPRAY, METERED DOSE
  167. FLUTICASONE FUROATE [Suspect]
     Active Substance: FLUTICASONE FUROATE
     Dosage: SPRAY, METERED DOSE
  168. FETZIMA [Suspect]
     Active Substance: LEVOMILNACIPRAN HYDROCHLORIDE
     Indication: Product used for unknown indication
     Dosage: 1 DF, QD
  169. FETZIMA [Suspect]
     Active Substance: LEVOMILNACIPRAN HYDROCHLORIDE
     Dosage: 1 DF, QD
     Route: 065
  170. FINACEA [Suspect]
     Active Substance: AZELAIC ACID
     Indication: Product used for unknown indication
     Dosage: 1 DF, QD
  171. FINACEA [Suspect]
     Active Substance: AZELAIC ACID
     Dosage: 1 DF
  172. FINACEA [Suspect]
     Active Substance: AZELAIC ACID
  173. FINACEA [Suspect]
     Active Substance: AZELAIC ACID
  174. FINACEA [Suspect]
     Active Substance: AZELAIC ACID
  175. FINACEA [Suspect]
     Active Substance: AZELAIC ACID
  176. FINACEA [Suspect]
     Active Substance: AZELAIC ACID
  177. FINACEA [Suspect]
     Active Substance: AZELAIC ACID
  178. FINACEA [Suspect]
     Active Substance: AZELAIC ACID
  179. FINACEA [Suspect]
     Active Substance: AZELAIC ACID
  180. FINACEA [Suspect]
     Active Substance: AZELAIC ACID
  181. LAMICTAL [Suspect]
     Active Substance: LAMOTRIGINE
     Indication: Product used for unknown indication
     Dosage: 50 MG, QOD
     Route: 048
  182. LAMICTAL [Suspect]
     Active Substance: LAMOTRIGINE
     Dosage: 25 MG, QOD
     Route: 048
  183. LAMICTAL [Suspect]
     Active Substance: LAMOTRIGINE
     Dosage: 50 MG
     Route: 048
  184. LAMICTAL [Suspect]
     Active Substance: LAMOTRIGINE
     Dosage: 25 MG, BID
     Route: 048
  185. LAMICTAL [Suspect]
     Active Substance: LAMOTRIGINE
     Dosage: 25 MG
     Route: 048
  186. LAMICTAL [Suspect]
     Active Substance: LAMOTRIGINE
     Dosage: QOD
     Route: 048
  187. LAMICTAL [Suspect]
     Active Substance: LAMOTRIGINE
     Route: 048
  188. LAMICTAL [Suspect]
     Active Substance: LAMOTRIGINE
     Route: 048
  189. LAMICTAL [Suspect]
     Active Substance: LAMOTRIGINE
     Route: 048
  190. LAMICTAL [Suspect]
     Active Substance: LAMOTRIGINE
     Route: 048
  191. LAMICTAL [Suspect]
     Active Substance: LAMOTRIGINE
     Route: 048
  192. LAMICTAL [Suspect]
     Active Substance: LAMOTRIGINE
     Route: 048
  193. LAMICTAL [Suspect]
     Active Substance: LAMOTRIGINE
     Route: 048
  194. LAMICTAL [Suspect]
     Active Substance: LAMOTRIGINE
     Route: 048
  195. LAMICTAL [Suspect]
     Active Substance: LAMOTRIGINE
     Route: 048
  196. MYRBETRIQ [Suspect]
     Active Substance: MIRABEGRON
     Indication: Product used for unknown indication
     Dosage: 1 DF, QD
  197. MYRBETRIQ [Suspect]
     Active Substance: MIRABEGRON
     Dosage: UNK
     Route: 065
  198. MYRBETRIQ [Suspect]
     Active Substance: MIRABEGRON
     Dosage: EXTENDED-RELEASE TABLET
  199. MYRBETRIQ [Suspect]
     Active Substance: MIRABEGRON
     Dosage: EXTENDED-RELEASE TABLET
  200. MYRBETRIQ [Suspect]
     Active Substance: MIRABEGRON
     Dosage: EXTENDED-RELEASE TABLET
  201. MYRBETRIQ [Suspect]
     Active Substance: MIRABEGRON
     Dosage: EXTENDED-RELEASE TABLET
  202. TRAZODONE [Suspect]
     Active Substance: TRAZODONE HYDROCHLORIDE
     Indication: Product used for unknown indication
     Dosage: 1 DF, QD
  203. TRAZODONE [Suspect]
     Active Substance: TRAZODONE HYDROCHLORIDE
     Dosage: 1 DF
     Route: 065
  204. TRAZODONE [Suspect]
     Active Substance: TRAZODONE HYDROCHLORIDE
  205. TRAZODONE [Suspect]
     Active Substance: TRAZODONE HYDROCHLORIDE
  206. TRAZODONE [Suspect]
     Active Substance: TRAZODONE HYDROCHLORIDE
  207. TRAZODONE [Suspect]
     Active Substance: TRAZODONE HYDROCHLORIDE
  208. CETIRIZINE HYDROCHLORIDE\PSEUDOEPHEDRINE HYDROCHLORIDE [Suspect]
     Active Substance: CETIRIZINE HYDROCHLORIDE\PSEUDOEPHEDRINE HYDROCHLORIDE
     Indication: Product used for unknown indication
     Dosage: UNK
  209. VITAMINS NOS [Suspect]
     Active Substance: VITAMINS
     Indication: Product used for unknown indication
     Dosage: 1 DF
  210. VITAMINS NOS [Suspect]
     Active Substance: VITAMINS
     Dosage: MULTIVITAMINE(S)
  211. VITAMINS NOS [Suspect]
     Active Substance: VITAMINS
     Dosage: MULTIVITAMINE(S)
  212. CETIRIZINE HYDROCHLORIDE [Suspect]
     Active Substance: CETIRIZINE HYDROCHLORIDE
     Indication: Product used for unknown indication
     Dosage: UNK
  213. CETIRIZINE HYDROCHLORIDE [Suspect]
     Active Substance: CETIRIZINE HYDROCHLORIDE
  214. CETIRIZINE HYDROCHLORIDE [Suspect]
     Active Substance: CETIRIZINE HYDROCHLORIDE
  215. CETIRIZINE HYDROCHLORIDE [Suspect]
     Active Substance: CETIRIZINE HYDROCHLORIDE
     Route: 065
  216. ERENUMAB [Suspect]
     Active Substance: ERENUMAB
     Indication: Migraine
     Dosage: UNK
     Route: 058
  217. ERENUMAB [Suspect]
     Active Substance: ERENUMAB
  218. ERENUMAB [Suspect]
     Active Substance: ERENUMAB
     Dosage: ERENUMAB AOOE
  219. MILNACIPRAN HYDROCHLORIDE [Suspect]
     Active Substance: MILNACIPRAN HYDROCHLORIDE
     Indication: Product used for unknown indication
     Dosage: 1 DF, QD
     Route: 065
  220. MILNACIPRAN HYDROCHLORIDE [Suspect]
     Active Substance: MILNACIPRAN HYDROCHLORIDE
  221. MILNACIPRAN HYDROCHLORIDE [Suspect]
     Active Substance: MILNACIPRAN HYDROCHLORIDE
  222. MAGNESIUM [Suspect]
     Active Substance: MAGNESIUM
     Indication: Product used for unknown indication
     Dosage: UNK
  223. MAGNESIUM [Suspect]
     Active Substance: MAGNESIUM
  224. MAGNESIUM [Suspect]
     Active Substance: MAGNESIUM
  225. MINERALS\VITAMINS [Suspect]
     Active Substance: MINERALS\VITAMINS
     Dosage: 1 DF, QD
  226. PAROXETINE HYDROCHLORIDE [Suspect]
     Active Substance: PAROXETINE HYDROCHLORIDE
     Indication: Product used for unknown indication
     Dosage: 1 DF, QD
  227. PAROXETINE HYDROCHLORIDE [Suspect]
     Active Substance: PAROXETINE HYDROCHLORIDE
     Dosage: 1 DF, QOD
  228. PHOSPHORUS [Suspect]
     Active Substance: PHOSPHORUS
     Indication: Product used for unknown indication
     Route: 065
  229. PHOSPHORUS [Suspect]
     Active Substance: PHOSPHORUS
  230. PHOSPHORUS [Suspect]
     Active Substance: PHOSPHORUS
  231. PHOSPHORUS [Suspect]
     Active Substance: PHOSPHORUS
  232. ERGOCALCIFEROL [Suspect]
     Active Substance: ERGOCALCIFEROL
     Indication: Product used for unknown indication
     Dosage: UNK
  233. ERGOCALCIFEROL [Suspect]
     Active Substance: ERGOCALCIFEROL
     Dosage: NOT SPECIFIED
  234. CORTISONE (HYDROCORTISONE) [Suspect]
     Active Substance: HYDROCORTISONE
     Indication: Product used for unknown indication
     Dosage: 25 MG, BID
  235. HYDROCORTISONE ACETATE [Suspect]
     Active Substance: HYDROCORTISONE ACETATE
     Indication: Product used for unknown indication
     Dosage: UNK
  236. CALCIUM GLUCONATE [Suspect]
     Active Substance: CALCIUM GLUCONATE
     Indication: Product used for unknown indication
     Dosage: UNK
  237. CALCIUM GLUCONATE [Suspect]
     Active Substance: CALCIUM GLUCONATE
  238. CYCLOBENZAPRINE [Suspect]
     Active Substance: CYCLOBENZAPRINE
     Indication: Product used for unknown indication
  239. CYCLOBENZAPRINE [Suspect]
     Active Substance: CYCLOBENZAPRINE
  240. CYCLOBENZAPRINE [Suspect]
     Active Substance: CYCLOBENZAPRINE
  241. CYCLOBENZAPRINE [Suspect]
     Active Substance: CYCLOBENZAPRINE
  242. CYCLOBENZAPRINE [Suspect]
     Active Substance: CYCLOBENZAPRINE
  243. CYCLOBENZAPRINE [Suspect]
     Active Substance: CYCLOBENZAPRINE
  244. CYCLOBENZAPRINE [Suspect]
     Active Substance: CYCLOBENZAPRINE
  245. CYCLOBENZAPRINE [Suspect]
     Active Substance: CYCLOBENZAPRINE
  246. CYCLOBENZAPRINE [Suspect]
     Active Substance: CYCLOBENZAPRINE
  247. CYCLOBENZAPRINE [Suspect]
     Active Substance: CYCLOBENZAPRINE
  248. CYCLOBENZAPRINE [Suspect]
     Active Substance: CYCLOBENZAPRINE
  249. CANDESARTAN [Suspect]
     Active Substance: CANDESARTAN
     Indication: Migraine
  250. CANDESARTAN [Suspect]
     Active Substance: CANDESARTAN
     Route: 048
  251. ACETAMINOPHEN [Suspect]
     Active Substance: ACETAMINOPHEN
  252. AZELAIC ACID [Suspect]
     Active Substance: AZELAIC ACID
     Indication: Product used for unknown indication
     Dosage: UNK
  253. AZELAIC ACID [Suspect]
     Active Substance: AZELAIC ACID
     Dosage: UNK
     Route: 005
  254. AZELAIC ACID [Suspect]
     Active Substance: AZELAIC ACID
  255. AZELAIC ACID [Suspect]
     Active Substance: AZELAIC ACID
     Route: 005
  256. AZELAIC ACID [Suspect]
     Active Substance: AZELAIC ACID
  257. AZELAIC ACID [Suspect]
     Active Substance: AZELAIC ACID
     Route: 005
  258. ASCORBIC ACID [Suspect]
     Active Substance: ASCORBIC ACID
     Indication: Product used for unknown indication
     Dosage: 1000 MG
     Route: 065
  259. PSEUDOEPHEDRINE HYDROCHLORIDE [Suspect]
     Active Substance: PSEUDOEPHEDRINE HYDROCHLORIDE
     Indication: Product used for unknown indication
     Dosage: UNK
     Route: 065
  260. PSEUDOEPHEDRINE HYDROCHLORIDE [Suspect]
     Active Substance: PSEUDOEPHEDRINE HYDROCHLORIDE
  261. PSEUDOEPHEDRINE HYDROCHLORIDE [Suspect]
     Active Substance: PSEUDOEPHEDRINE HYDROCHLORIDE
  262. PSEUDOEPHEDRINE HYDROCHLORIDE [Suspect]
     Active Substance: PSEUDOEPHEDRINE HYDROCHLORIDE
  263. PSEUDOEPHEDRINE HYDROCHLORIDE [Suspect]
     Active Substance: PSEUDOEPHEDRINE HYDROCHLORIDE
  264. PSEUDOEPHEDRINE HYDROCHLORIDE [Suspect]
     Active Substance: PSEUDOEPHEDRINE HYDROCHLORIDE
  265. TRAZODONE HYDROCHLORIDE [Suspect]
     Active Substance: TRAZODONE HYDROCHLORIDE
     Indication: Product used for unknown indication
     Dosage: 1 DF
     Route: 065
  266. TRAZODONE HYDROCHLORIDE [Suspect]
     Active Substance: TRAZODONE HYDROCHLORIDE
  267. TRAZODONE HYDROCHLORIDE [Suspect]
     Active Substance: TRAZODONE HYDROCHLORIDE
  268. TRAZODONE HYDROCHLORIDE [Suspect]
     Active Substance: TRAZODONE HYDROCHLORIDE
  269. TRAZODONE HYDROCHLORIDE [Suspect]
     Active Substance: TRAZODONE HYDROCHLORIDE
  270. PSEUDOEPHEDRINE [Suspect]
     Active Substance: PSEUDOEPHEDRINE
     Indication: Product used for unknown indication
     Dosage: UNK
  271. PSEUDOEPHEDRINE [Suspect]
     Active Substance: PSEUDOEPHEDRINE
  272. PSEUDOEPHEDRINE [Suspect]
     Active Substance: PSEUDOEPHEDRINE
  273. TOPAMAX [Suspect]
     Active Substance: TOPIRAMATE
     Indication: Product used for unknown indication
  274. TOPAMAX [Suspect]
     Active Substance: TOPIRAMATE
  275. TOPAMAX [Suspect]
     Active Substance: TOPIRAMATE
  276. TOPAMAX [Suspect]
     Active Substance: TOPIRAMATE
  277. TOPAMAX [Suspect]
     Active Substance: TOPIRAMATE
  278. TOPAMAX [Suspect]
     Active Substance: TOPIRAMATE
  279. TOPAMAX [Suspect]
     Active Substance: TOPIRAMATE
  280. TOPAMAX [Suspect]
     Active Substance: TOPIRAMATE
  281. TOPAMAX [Suspect]
     Active Substance: TOPIRAMATE
  282. TOPAMAX [Suspect]
     Active Substance: TOPIRAMATE
  283. TOPAMAX [Suspect]
     Active Substance: TOPIRAMATE
  284. TOPAMAX [Suspect]
     Active Substance: TOPIRAMATE
  285. CETIRIZINE HYDROCHLORIDE AND PSEUDOEPHEDRINE HYDROCHLORIDE [Suspect]
     Active Substance: CETIRIZINE HYDROCHLORIDE\PSEUDOEPHEDRINE HYDROCHLORIDE
  286. CETIRIZINE HYDROCHLORIDE AND PSEUDOEPHEDRINE HYDROCHLORIDE [Suspect]
     Active Substance: CETIRIZINE HYDROCHLORIDE\PSEUDOEPHEDRINE HYDROCHLORIDE
  287. CETIRIZINE [Suspect]
     Active Substance: CETIRIZINE HYDROCHLORIDE
     Indication: Product used for unknown indication
  288. CETIRIZINE [Suspect]
     Active Substance: CETIRIZINE HYDROCHLORIDE
  289. CETIRIZINE [Suspect]
     Active Substance: CETIRIZINE HYDROCHLORIDE
  290. CETIRIZINE [Suspect]
     Active Substance: CETIRIZINE HYDROCHLORIDE
  291. CHOLECALCIFEROL [Suspect]
     Active Substance: CHOLECALCIFEROL
  292. STRATTERA [Suspect]
     Active Substance: ATOMOXETINE HYDROCHLORIDE
     Indication: Product used for unknown indication
  293. PAROXETINE [Suspect]
     Active Substance: PAROXETINE
     Indication: Product used for unknown indication
  294. VITAMIN D3 [Suspect]
     Active Substance: CHOLECALCIFEROL
     Indication: Product used for unknown indication
  295. VITAMIN D3 [Suspect]
     Active Substance: CHOLECALCIFEROL
  296. VITAMIN D3 [Suspect]
     Active Substance: CHOLECALCIFEROL
  297. VITAMIN D3 [Suspect]
     Active Substance: CHOLECALCIFEROL
  298. VITAMIN D3 [Suspect]
     Active Substance: CHOLECALCIFEROL
  299. VITAMIN D3 [Suspect]
     Active Substance: CHOLECALCIFEROL
  300. VITAMIN D3 [Suspect]
     Active Substance: CHOLECALCIFEROL
  301. VITAMIN D3 [Suspect]
     Active Substance: CHOLECALCIFEROL
  302. CETIRIZINE HYDROCHLORIDE\PSEUDOEPHEDRINE HYDROCHLORIDE [Suspect]
     Active Substance: CETIRIZINE HYDROCHLORIDE\PSEUDOEPHEDRINE HYDROCHLORIDE
     Indication: Product used for unknown indication
     Dosage: UNK
  303. CETIRIZINE HYDROCHLORIDE\PSEUDOEPHEDRINE HYDROCHLORIDE [Suspect]
     Active Substance: CETIRIZINE HYDROCHLORIDE\PSEUDOEPHEDRINE HYDROCHLORIDE
     Dosage: TABLET (EXTENDED- RELEASE)
  304. DOMPERIDONE\PANTOPRAZOLE SODIUM [Concomitant]
     Active Substance: DOMPERIDONE\PANTOPRAZOLE SODIUM
     Indication: Product used for unknown indication
     Dosage: 3 DF, Q3D
  305. DOMPERIDONE\PANTOPRAZOLE SODIUM [Concomitant]
     Active Substance: DOMPERIDONE\PANTOPRAZOLE SODIUM
     Dosage: 1 DF, Q8H
     Route: 065
  306. DOMPERIDONE\PANTOPRAZOLE SODIUM [Suspect]
     Active Substance: DOMPERIDONE\PANTOPRAZOLE SODIUM
  307. DOMPERIDONE\PANTOPRAZOLE SODIUM [Suspect]
     Active Substance: DOMPERIDONE\PANTOPRAZOLE SODIUM
  308. DOMPERIDONE\PANTOPRAZOLE SODIUM [Suspect]
     Active Substance: DOMPERIDONE\PANTOPRAZOLE SODIUM
  309. DOMPERIDONE\PANTOPRAZOLE SODIUM [Suspect]
     Active Substance: DOMPERIDONE\PANTOPRAZOLE SODIUM
  310. LAMOTRIGINE [Suspect]
     Active Substance: LAMOTRIGINE
     Indication: Product used for unknown indication
     Dosage: 50 MG, QID
     Route: 048
  311. LAMOTRIGINE [Suspect]
     Active Substance: LAMOTRIGINE
     Dosage: 25 MG, BID
     Route: 048
  312. LAMOTRIGINE [Suspect]
     Active Substance: LAMOTRIGINE
     Dosage: 50 MG, BID
     Route: 048
  313. LAMOTRIGINE [Suspect]
     Active Substance: LAMOTRIGINE
     Dosage: 50 MG, QOD
     Route: 048
  314. LAMOTRIGINE [Suspect]
     Active Substance: LAMOTRIGINE
     Dosage: 25 MG, QOD
     Route: 048
  315. LAMOTRIGINE [Suspect]
     Active Substance: LAMOTRIGINE
     Dosage: 50 MG
     Route: 048
  316. LAMOTRIGINE [Suspect]
     Active Substance: LAMOTRIGINE
     Route: 048
  317. LAMOTRIGINE [Suspect]
     Active Substance: LAMOTRIGINE
     Route: 048
  318. LAMOTRIGINE [Suspect]
     Active Substance: LAMOTRIGINE
     Route: 048
  319. LAMOTRIGINE [Suspect]
     Active Substance: LAMOTRIGINE
     Dosage: QOD
     Route: 048
  320. LAMOTRIGINE [Suspect]
     Active Substance: LAMOTRIGINE
     Route: 048
  321. LAMOTRIGINE [Suspect]
     Active Substance: LAMOTRIGINE
     Route: 048
  322. LAMOTRIGINE [Suspect]
     Active Substance: LAMOTRIGINE
     Route: 048
  323. LAMOTRIGINE [Suspect]
     Active Substance: LAMOTRIGINE
     Route: 048
  324. LAMOTRIGINE [Suspect]
     Active Substance: LAMOTRIGINE
     Route: 048
  325. LAMOTRIGINE [Suspect]
     Active Substance: LAMOTRIGINE
     Dosage: 25 MG, BID
     Route: 048
  326. LAMOTRIGINE [Suspect]
     Active Substance: LAMOTRIGINE
     Dosage: 50 MG
     Route: 048
  327. LAMOTRIGINE [Suspect]
     Active Substance: LAMOTRIGINE
     Route: 048
  328. RANITIDINE HYDROCHLORIDE [Suspect]
     Active Substance: RANITIDINE HYDROCHLORIDE
     Indication: Product used for unknown indication
     Dosage: UNK
  329. RANITIDINE HYDROCHLORIDE [Suspect]
     Active Substance: RANITIDINE HYDROCHLORIDE
     Dosage: UNK
  330. CETIRIZINE HYDROCHLORIDE\PSEUDOEPHEDRINE HYDROCHLORIDE [Suspect]
     Active Substance: CETIRIZINE HYDROCHLORIDE\PSEUDOEPHEDRINE HYDROCHLORIDE
  331. CETIRIZINE HYDROCHLORIDE\PSEUDOEPHEDRINE HYDROCHLORIDE [Suspect]
     Active Substance: CETIRIZINE HYDROCHLORIDE\PSEUDOEPHEDRINE HYDROCHLORIDE
  332. VITAMINS [Suspect]
     Active Substance: VITAMINS
     Indication: Product used for unknown indication
     Dosage: MULTIVITAMINE(S)
  333. HYDROMORPHONE HYDROCHLORIDE [Suspect]
     Active Substance: HYDROMORPHONE HYDROCHLORIDE
     Indication: Product used for unknown indication
     Dosage: 1 DF, BID
  334. HYDROMORPHONE HYDROCHLORIDE [Suspect]
     Active Substance: HYDROMORPHONE HYDROCHLORIDE
     Dosage: 1 DF
  335. HYDROMORPHONE HYDROCHLORIDE [Suspect]
     Active Substance: HYDROMORPHONE HYDROCHLORIDE
     Dosage: 2 DF, BID
  336. RANITIDINE [Suspect]
     Active Substance: RANITIDINE
     Indication: Product used for unknown indication
  337. ACETAMINOPHEN [Suspect]
     Active Substance: ACETAMINOPHEN
     Dosage: NOT SPECIFIED
  338. MIRABEGRON [Suspect]
     Active Substance: MIRABEGRON
     Dosage: EXTENDED-RELEASE TABLET
  339. MIRABEGRON [Suspect]
     Active Substance: MIRABEGRON
     Dosage: EXTENDED-RELEASE TABLET
  340. CETIRIZINE HYDROCHLORIDE\PSEUDOEPHEDRINE HYDROCHLORIDE [Suspect]
     Active Substance: CETIRIZINE HYDROCHLORIDE\PSEUDOEPHEDRINE HYDROCHLORIDE
     Indication: Product used for unknown indication
     Dosage: UNK
  341. CETIRIZINE HYDROCHLORIDE\PSEUDOEPHEDRINE HYDROCHLORIDE [Suspect]
     Active Substance: CETIRIZINE HYDROCHLORIDE\PSEUDOEPHEDRINE HYDROCHLORIDE
     Dosage: UNK
  342. CETIRIZINE HYDROCHLORIDE\PSEUDOEPHEDRINE HYDROCHLORIDE [Suspect]
     Active Substance: CETIRIZINE HYDROCHLORIDE\PSEUDOEPHEDRINE HYDROCHLORIDE
     Dosage: 1 DF, QD
  343. MINERALS\VITAMINS [Suspect]
     Active Substance: MINERALS\VITAMINS
     Indication: Product used for unknown indication
  344. CALCIUM PANTOTHENATE [Suspect]
     Active Substance: CALCIUM PANTOTHENATE
     Indication: Product used for unknown indication
  345. CALCIUM PANTOTHENATE [Suspect]
     Active Substance: CALCIUM PANTOTHENATE
  346. CETIRIZINE HYDROCHLORIDE [Suspect]
     Active Substance: CETIRIZINE HYDROCHLORIDE
     Indication: Product used for unknown indication
     Dosage: UNK
  347. CETIRIZINE HYDROCHLORIDE [Suspect]
     Active Substance: CETIRIZINE HYDROCHLORIDE
     Dosage: UNK
  348. CETIRIZINE HYDROCHLORIDE [Suspect]
     Active Substance: CETIRIZINE HYDROCHLORIDE
     Dosage: 3 DF, QD
  349. CETIRIZINE HYDROCHLORIDE [Suspect]
     Active Substance: CETIRIZINE HYDROCHLORIDE
     Dosage: 3 DF, QOD
  350. HERBALS\MINERALS\VITAMINS [Suspect]
     Active Substance: HERBALS\MINERALS\VITAMINS
     Indication: Product used for unknown indication
     Dosage: UNK

REACTIONS (15)
  - Blepharospasm [Unknown]
  - Drug intolerance [Unknown]
  - Epilepsy [Unknown]
  - Gastrooesophageal reflux disease [Unknown]
  - Hypoaesthesia [Unknown]
  - Memory impairment [Unknown]
  - Migraine [Unknown]
  - Paraesthesia [Unknown]
  - Taste disorder [Unknown]
  - Abdominal pain upper [Unknown]
  - Vomiting [Unknown]
  - Pain [Unknown]
  - Product use in unapproved indication [Unknown]
  - Drug ineffective [Unknown]
  - Off label use [Unknown]
